FAERS Safety Report 11168531 (Version 3)
Quarter: 2015Q3

REPORT INFORMATION
  Report Type: Spontaneous
  Country: JP (occurrence: JP)
  Receive Date: 20150605
  Receipt Date: 20150806
  Transmission Date: 20151125
  Serious: Yes (Hospitalization)
  Sender: FDA-Public Use
  Company Number: JP-PFIZER INC-2015187235

PATIENT
  Age: 77 Year
  Sex: Female

DRUGS (15)
  1. TRAZENTA [Concomitant]
     Active Substance: LINAGLIPTIN
  2. CELECOX [Suspect]
     Active Substance: CELECOXIB
     Dosage: 100 MG, 2X/DAY
     Route: 048
     Dates: start: 20150420, end: 20150512
  3. SPIRONOLACTONE. [Concomitant]
     Active Substance: SPIRONOLACTONE
  4. LUPRAC [Concomitant]
     Active Substance: TORSEMIDE
  5. ZOLPIDEM TARTRATE. [Concomitant]
     Active Substance: ZOLPIDEM TARTRATE
  6. FERROMIA [Concomitant]
     Active Substance: FERROUS CITRATE
  7. WARFARIN [Concomitant]
     Active Substance: WARFARIN
  8. TRAMAL [Suspect]
     Active Substance: TRAMADOL
     Indication: BACK PAIN
     Dosage: 25 MG, 1X/DAY
     Route: 048
     Dates: start: 20150420, end: 20150512
  9. MAGLAX [Concomitant]
     Active Substance: MAGNESIUM OXIDE
  10. FUROSEMIDE. [Concomitant]
     Active Substance: FUROSEMIDE
  11. SAMSCA [Concomitant]
     Active Substance: TOLVAPTAN
  12. CINAL [Concomitant]
     Active Substance: ASCORBIC ACID\CALCIUM PANTOTHENATE
  13. ALLOPURINOL. [Concomitant]
     Active Substance: ALLOPURINOL
  14. TAKEPRON [Concomitant]
     Active Substance: LANSOPRAZOLE
  15. LOPRESSOR [Concomitant]
     Active Substance: METOPROLOL TARTRATE

REACTIONS (5)
  - Dyspnoea [Recovered/Resolved]
  - Blood potassium increased [Recovered/Resolved]
  - Blood pressure decreased [Recovered/Resolved]
  - Gait disturbance [Recovered/Resolved]
  - Heart rate decreased [Recovered/Resolved]

NARRATIVE: CASE EVENT DATE: 20150512
